FAERS Safety Report 4654517-5 (Version None)
Quarter: 2005Q2

REPORT INFORMATION
  Report Type: 
  Country: None (occurrence: None)
  Receive Date: 20050504
  Receipt Date: 20050504
  Transmission Date: 20051028
  Serious: Yes (Hospitalization)
  Sender: FDA-Public Use
  Company Number: None

PATIENT
  Age: 94 Year
  Sex: Female
  Weight: 100.2 kg

DRUGS (2)
  1. WARFARIN 5 MG [Suspect]
     Indication: ATRIAL FIBRILLATION
     Dosage: 5 MG DAILY ORAL
     Route: 048
  2. BEXTRA [Suspect]
     Indication: OSTEOARTHRITIS
     Dosage: 10 MG DAILY ORAL
     Route: 048

REACTIONS (5)
  - ANAEMIA [None]
  - DIZZINESS [None]
  - FAECES DISCOLOURED [None]
  - FALL [None]
  - INTERNATIONAL NORMALISED RATIO INCREASED [None]
